FAERS Safety Report 14805590 (Version 2)
Quarter: 2018Q2

REPORT INFORMATION
  Report Type: Report from Study
  Country: GB (occurrence: GB)
  Receive Date: 20180425
  Receipt Date: 20180620
  Transmission Date: 20180711
  Serious: Yes (Hospitalization)
  Sender: FDA-Public Use
  Company Number: PHHY2018GB070541

PATIENT
  Age: 2 Year
  Sex: Male

DRUGS (7)
  1. AMN107 [Suspect]
     Active Substance: NILOTINIB
     Indication: GLIOMA
     Dosage: UNK
     Route: 048
     Dates: start: 20180116
  2. LATANOPROST. [Concomitant]
     Active Substance: LATANOPROST
     Indication: PRODUCT USED FOR UNKNOWN INDICATION
     Dosage: 1 DROP IN THE EVENING (BETWEEN 21 AND 22 HOURS)
     Route: 065
     Dates: start: 20180408
  3. VINBLASTINE SULFATE. [Suspect]
     Active Substance: VINBLASTINE SULFATE
     Indication: GLIOMA
     Dosage: UNK
     Route: 042
  4. LACRI-LUBE [Concomitant]
     Indication: PRODUCT USED FOR UNKNOWN INDICATION
     Dosage: IN EVENING (BETWEEN 21 TO 22 HOURS)
     Route: 065
     Dates: start: 20180408
  5. PREDNISOLONE ACETATE. [Concomitant]
     Active Substance: PREDNISOLONE ACETATE
     Indication: PRODUCT USED FOR UNKNOWN INDICATION
     Dosage: 1 PERCENT, 2 DROPS IN MORNING BETWEEN 08 AND09 HRS AND IN EVENING BETWEEN 21 AND 22 HOURS
     Route: 065
     Dates: start: 20170408
  6. TAZOCIN [Concomitant]
     Active Substance: PIPERACILLIN SODIUM\TAZOBACTAM SODIUM
     Indication: PRODUCT USED FOR UNKNOWN INDICATION
     Dosage: 1260 MG, UNK
     Route: 065
     Dates: start: 20180408
  7. PREDNISOLONE SODIUM PHOSPHATE. [Concomitant]
     Active Substance: PREDNISOLONE SODIUM PHOSPHATE
     Indication: PRODUCT USED FOR UNKNOWN INDICATION
     Dosage: 0.5 %, (1 DROP MORNING AND EVENING)
     Route: 065
     Dates: start: 20180408

REACTIONS (1)
  - Pyrexia [Recovered/Resolved]

NARRATIVE: CASE EVENT DATE: 20180408
